FAERS Safety Report 10344966 (Version 1)
Quarter: 2014Q3

REPORT INFORMATION
  Report Type: Spontaneous
  Country: US (occurrence: US)
  Receive Date: 20140728
  Receipt Date: 20140728
  Transmission Date: 20150326
  Serious: No
  Sender: FDA-Public Use
  Company Number: US-TEVA-495469USA

PATIENT
  Sex: Female
  Weight: 69.92 kg

DRUGS (2)
  1. NUVIGIL [Suspect]
     Active Substance: ARMODAFINIL
     Indication: INSOMNIA
     Dates: start: 20140709, end: 20140715
  2. NUVIGIL [Suspect]
     Active Substance: ARMODAFINIL
     Indication: NAUSEA

REACTIONS (2)
  - Wrong technique in drug usage process [Unknown]
  - Nausea [Unknown]
